FAERS Safety Report 19623371 (Version 2)
Quarter: 2021Q3

REPORT INFORMATION
  Report Type: Report from Study
  Country: US (occurrence: US)
  Receive Date: 20210729
  Receipt Date: 20210730
  Transmission Date: 20211014
  Serious: Yes (Other)
  Sender: FDA-Public Use
  Company Number: US-ASTRAZENECA-2021A643523

PATIENT
  Age: 82 Year
  Sex: Female
  Weight: 65.8 kg

DRUGS (1)
  1. FASENRA [Suspect]
     Active Substance: BENRALIZUMAB
     Indication: ASTHMA
     Dosage: 30 MG, TOOK FASENRA 1 MONTH APART FOR 3 TIMES, IS NOW ON Q 2 MONTHS INJECTIONS
     Route: 058

REACTIONS (3)
  - Skin disorder [Unknown]
  - Device leakage [Unknown]
  - Wrong technique in device usage process [Unknown]
